FAERS Safety Report 6371376-3 (Version None)
Quarter: 2009Q3

REPORT INFORMATION
  Report Type: 
  Country: None (occurrence: None)
  Receive Date: 20090923
  Receipt Date: 20090916
  Transmission Date: 20100115
  Serious: Yes (Other)
  Sender: FDA-Public Use
  Company Number: FR-PFIZER INC-2009271084

PATIENT
  Age: 50 Year

DRUGS (1)
  1. XALATAN [Suspect]

REACTIONS (1)
  - CATARACT [None]
